FAERS Safety Report 6886596-9 (Version None)
Quarter: 2010Q3

REPORT INFORMATION
  Report Type: 
  Country: None (occurrence: None)
  Receive Date: 20100730
  Receipt Date: 20100721
  Transmission Date: 20110219
  Serious: Yes (Hospitalization)
  Sender: FDA-Public Use
  Company Number: US-BIOGENIDEC-2010BI024901

PATIENT
  Age: 34 Year
  Sex: Female

DRUGS (2)
  1. TYSABRI [Suspect]
     Indication: MULTIPLE SCLEROSIS
     Route: 042
     Dates: start: 20070412, end: 20070604
  2. TYSABRI [Suspect]
     Route: 042
     Dates: start: 20081024

REACTIONS (2)
  - MULTIPLE SCLEROSIS RELAPSE [None]
  - VERTIGO [None]
